FAERS Safety Report 9157456 (Version 1)
Quarter: 2013Q1

REPORT INFORMATION
  Report Type: Spontaneous
  Country: US (occurrence: US)
  Receive Date: 20130312
  Receipt Date: 20130312
  Transmission Date: 20140127
  Serious: No
  Sender: FDA-Public Use
  Company Number: US-BAYER-2013-029988

PATIENT
  Sex: 0

DRUGS (4)
  1. ALEVE CAPLET/TABLET,MIDOL EXTENDED RELIEF CAPLET [Suspect]
     Indication: ANALGESIC THERAPY
  2. TYLENOL NOS [Concomitant]
  3. IBUPROFEN [IBUPROFEN] [Concomitant]
  4. PERCOCET [Concomitant]

REACTIONS (1)
  - Drug ineffective [None]
